FAERS Safety Report 12105831 (Version 1)
Quarter: 2016Q1

REPORT INFORMATION
  Report Type: Spontaneous
  Country: US (occurrence: None)
  Receive Date: 20160222
  Receipt Date: 20160222
  Transmission Date: 20160526
  Serious: Yes (Death)
  Sender: FDA-Public Use
  Company Number: None

PATIENT
  Age: 68 Year
  Sex: Female
  Weight: 45.36 kg

DRUGS (4)
  1. VALPROIC ACID. [Concomitant]
     Active Substance: VALPROIC ACID
  2. KLONCIPAN [Concomitant]
  3. VITAMIN D3 [Concomitant]
     Active Substance: CHOLECALCIFEROL
  4. VALPROIC ACID. [Suspect]
     Active Substance: VALPROIC ACID
     Indication: AUTISM
     Route: 048
     Dates: start: 20090606, end: 20151030

REACTIONS (3)
  - Pneumonia [None]
  - Pulmonary mass [None]
  - Hepatic cyst [None]

NARRATIVE: CASE EVENT DATE: 20150808
